FAERS Safety Report 5989348-7 (Version None)
Quarter: 2008Q4

REPORT INFORMATION
  Report Type: 
  Country: None (occurrence: None)
  Receive Date: 20081210
  Receipt Date: 20081128
  Transmission Date: 20090506
  Serious: Yes (Other)
  Sender: FDA-Public Use
  Company Number: BR-PFIZER INC-2008101395

PATIENT

DRUGS (1)
  1. VIAGRA [Suspect]
     Route: 048
     Dates: start: 20081118

REACTIONS (4)
  - EYE PAIN [None]
  - LACRIMATION INCREASED [None]
  - RETINAL VASCULAR DISORDER [None]
  - VISUAL ACUITY REDUCED [None]
